FAERS Safety Report 5999653-6 (Version None)
Quarter: 2008Q4

REPORT INFORMATION
  Report Type: 
  Country: None (occurrence: None)
  Receive Date: 20081211
  Receipt Date: 20081211
  Transmission Date: 20090506
  Serious: Yes (Hospitalization)
  Sender: FDA-Public Use
  Company Number: None

PATIENT
  Age: 57 Year
  Sex: Female
  Weight: 63.5036 kg

DRUGS (2)
  1. NITROFURANTOIN MACROCRYSTALLINE [Suspect]
     Indication: CYSTITIS
     Dosage: 100MGM 1 CAPSULE 2 TIMES DAILY ORAL 8:00PM 10/25/08 - 1 PILL 8:00AM 10/26/08 - 1 PILL
     Route: 048
     Dates: start: 20081025
  2. NITROFURANTOIN MACROCRYSTALLINE [Suspect]
     Indication: CYSTITIS
     Dosage: 100MGM 1 CAPSULE 2 TIMES DAILY ORAL 8:00PM 10/25/08 - 1 PILL 8:00AM 10/26/08 - 1 PILL
     Route: 048
     Dates: start: 20081026

REACTIONS (5)
  - CONFUSIONAL STATE [None]
  - FEELING ABNORMAL [None]
  - GLOBAL AMNESIA [None]
  - HEADACHE [None]
  - SOMNOLENCE [None]
